FAERS Safety Report 5311370-4 (Version None)
Quarter: 2007Q2

REPORT INFORMATION
  Report Type: 
  Country: None (occurrence: None)
  Receive Date: 20070426
  Receipt Date: 20070426
  Transmission Date: 20071010
  Serious: Yes (Other)
  Sender: FDA-Public Use
  Company Number: None

PATIENT
  Age: 50 Year
  Sex: Male
  Weight: 68.9 kg

DRUGS (7)
  1. MEPERIDINE HCL [Suspect]
     Indication: COLONOSCOPY
     Dosage: 100 MG IV ONCE
     Route: 042
     Dates: start: 20061207
  2. MIDAZOLAM HCL [Suspect]
     Indication: COLONOSCOPY
     Dosage: 4 MG IV ONCE
     Route: 042
     Dates: start: 20061207
  3. FELODIPINE [Concomitant]
  4. PRAZOSIN HCL [Concomitant]
  5. HYDROCHLOROTHIAZIDE [Concomitant]
  6. RANITIDINE [Concomitant]
  7. FLUNISOLIDE NASAL SPRAY [Concomitant]

REACTIONS (3)
  - BODY TEMPERATURE DECREASED [None]
  - PRURITUS [None]
  - RASH MACULO-PAPULAR [None]
